FAERS Safety Report 18063978 (Version 1)
Quarter: 2020Q3

REPORT INFORMATION
  Report Type: Spontaneous
  Country: US (occurrence: US)
  Receive Date: 20200724
  Receipt Date: 20200724
  Transmission Date: 20201103
  Serious: Yes (Hospitalization, Other)
  Sender: FDA-Public Use
  Company Number: US-EMCURE PHARMACEUTICALS LTD-2020-EPL-000952

PATIENT
  Age: 60 Year
  Sex: Female

DRUGS (10)
  1. METHOTREXATE. [Interacting]
     Active Substance: METHOTREXATE
     Indication: B-CELL TYPE ACUTE LEUKAEMIA
     Dosage: CYCLE, INFUSED OVER 24 H
     Route: 041
  2. LORAZEPAM. [Concomitant]
     Active Substance: LORAZEPAM
  3. FOLINIC ACID [Concomitant]
     Active Substance: LEUCOVORIN
     Dosage: 150 MILLIGRAM, 1 DOSE PER 3HRS
     Route: 042
  4. CYTARABINE. [Concomitant]
     Active Substance: CYTARABINE
     Indication: B-CELL TYPE ACUTE LEUKAEMIA
     Dosage: INFUSED OVER 2 H EVERY 12 H FOR FOUR DOSES
     Route: 041
  5. FOLINIC ACID [Concomitant]
     Active Substance: LEUCOVORIN
     Route: 048
  6. LISINOPRIL. [Suspect]
     Active Substance: LISINOPRIL
     Indication: PRODUCT USED FOR UNKNOWN INDICATION
     Dosage: UNK
     Route: 065
  7. VORICONAZOLE. [Concomitant]
     Active Substance: VORICONAZOLE
  8. AMIODARONE [Concomitant]
     Active Substance: AMIODARONE
  9. METHOTREXATE. [Interacting]
     Active Substance: METHOTREXATE
     Dosage: HDMTX
     Route: 041
  10. METOPROLOL. [Concomitant]
     Active Substance: METOPROLOL

REACTIONS (7)
  - Drug interaction [Recovered/Resolved]
  - Mucosal inflammation [Recovered/Resolved]
  - Drug clearance decreased [Recovered/Resolved]
  - Nephropathy [Recovered/Resolved]
  - Toxicity to various agents [Recovered/Resolved]
  - Acute kidney injury [Recovered/Resolved]
  - Pancytopenia [Recovered/Resolved]
